FAERS Safety Report 10637364 (Version 1)
Quarter: 2014Q4

REPORT INFORMATION
  Report Type: Spontaneous
  Country: US (occurrence: None)
  Receive Date: 20141204
  Receipt Date: 20141204
  Transmission Date: 20150529
  Serious: Yes (Life-Threatening, Hospitalization, Disabling, Other)
  Sender: FDA-Public Use
  Company Number: None

PATIENT
  Age: 71 Year
  Sex: Male
  Weight: 83.92 kg

DRUGS (1)
  1. ALLOPURINOL 100 MG [Suspect]
     Active Substance: ALLOPURINOL
     Indication: GOUT
     Dosage: 3 PILLS, TAKEN BY MOUTH

REACTIONS (11)
  - Confusional state [None]
  - Chromaturia [None]
  - Unevaluable event [None]
  - Nausea [None]
  - Renal disorder [None]
  - Headache [None]
  - Muscular weakness [None]
  - Pyrexia [None]
  - Decreased appetite [None]
  - Abdominal pain upper [None]
  - Blood pressure decreased [None]

NARRATIVE: CASE EVENT DATE: 20141105
